FAERS Safety Report 8256581-3 (Version None)
Quarter: 2012Q2

REPORT INFORMATION
  Report Type: 
  Country: None (occurrence: None)
  Receive Date: 20120403
  Receipt Date: 20120329
  Transmission Date: 20120825
  Serious: Yes (Disabling, Other)
  Sender: FDA-Public Use
  Company Number: US-PFIZER INC-2012023370

PATIENT
  Sex: Female
  Weight: 90 kg

DRUGS (21)
  1. METHOCARBAMOL [Suspect]
     Indication: NEUROPATHY PERIPHERAL
  2. DILANTIN [Suspect]
     Dosage: 300 MG, 2X/DAY
     Route: 048
  3. SIMVASTATIN [Suspect]
     Indication: BLOOD CHOLESTEROL INCREASED
     Dosage: 40 MG, DAILY
     Route: 048
  4. LACTULOSE [Suspect]
     Indication: CROHN'S DISEASE
     Dosage: 30 MG SOLUTION, AS NEEDED
  5. DEPAKOTE [Suspect]
     Indication: CONVULSION
     Dosage: 500 MG, 2X/DAY
     Route: 048
  6. HUMULIN R [Suspect]
     Indication: DIABETES MELLITUS
     Dosage: 24 IU, 3X/DAY
  7. TYLENOL W/ CODEINE NO. 3 [Suspect]
     Indication: MIGRAINE
     Dosage: UNK DAILY
  8. ZANTAC [Suspect]
     Indication: GASTROOESOPHAGEAL REFLUX DISEASE
     Dosage: 300 MG, 3X/DAY
  9. ISOSORBIDE DINITRATE [Suspect]
     Indication: CARDIAC DISORDER
     Dosage: 30 MG, 3X/DAY
  10. POTASSIUM CHLORIDE [Suspect]
     Indication: BLOOD POTASSIUM ABNORMAL
     Dosage: 8 MEQ, DAILY
  11. FUROSEMIDE [Suspect]
     Indication: DIURETIC THERAPY
     Dosage: 40 MG, 2X/DAY
     Route: 048
  12. REMERON [Suspect]
     Indication: INSOMNIA
     Dosage: 30 MG, DAILY
     Route: 048
  13. ATENOLOL [Suspect]
     Indication: HYPERTENSION
     Dosage: 25 MG, DAILY
     Route: 048
  14. METHOCARBAMOL [Suspect]
     Indication: MUSCLE SPASMS
     Dosage: 750 MG, AS NEEDED
     Route: 048
  15. ASPIRIN [Suspect]
     Indication: CHEST PAIN
     Dosage: 81 MG, AS NEEDED
  16. LANTUS [Suspect]
     Indication: DIABETES MELLITUS
     Dosage: 80UNITS IN THE MORNING AND 90 UNITS AT NIGHT
  17. ATIVAN [Suspect]
     Indication: ANXIETY
     Dosage: 1 MG, 3X/DAY
     Route: 048
  18. NORVASC [Suspect]
     Indication: CARDIAC DISORDER
     Dosage: UNK
     Route: 048
  19. NORVASC [Suspect]
     Indication: LUNG DISORDER
  20. NITROSTAT [Suspect]
     Indication: CHEST PAIN
     Dosage: 0.4 MG, AS NEEDED
  21. LOMOTIL [Suspect]
     Indication: CROHN'S DISEASE
     Dosage: 2.5 MG, 4X/DAY
     Route: 048

REACTIONS (4)
  - EMPHYSEMA [None]
  - AMNESIA [None]
  - CHRONIC OBSTRUCTIVE PULMONARY DISEASE [None]
  - BEDRIDDEN [None]
